FAERS Safety Report 4876765-1 (Version None)
Quarter: 2005Q4

REPORT INFORMATION
  Report Type: 
  Country: None (occurrence: None)
  Receive Date: 20051206
  Receipt Date: 20050819
  Transmission Date: 20060501
  Serious: No
  Sender: FDA-Public Use
  Company Number: USA050290648

PATIENT
  Age: 43 Year
  Sex: Male
  Weight: 91 kg

DRUGS (3)
  1. CYMBALTA [Suspect]
     Indication: DEPRESSION
     Dosage: 60 MG DAY
     Dates: start: 20050202, end: 20050501
  2. CYMBALTA [Suspect]
     Indication: OBSESSIVE-COMPULSIVE DISORDER
     Dosage: 60 MG DAY
     Dates: start: 20050202, end: 20050501
  3. PROZAC [Suspect]
     Indication: DEPRESSION
     Dosage: 40 MG DAY
     Dates: start: 19950101

REACTIONS (8)
  - ACNE [None]
  - DRUG INEFFECTIVE [None]
  - FOLLICULITIS [None]
  - HYPOTRICHOSIS [None]
  - NIGHT SWEATS [None]
  - OBSESSIVE THOUGHTS [None]
  - SKIN INJURY [None]
  - SKIN LESION [None]
